FAERS Safety Report 4334355-3 (Version None)
Quarter: 2004Q2

REPORT INFORMATION
  Report Type: 
  Country: None (occurrence: None)
  Receive Date: 20040405
  Receipt Date: 20040329
  Transmission Date: 20050107
  Serious: Yes (Hospitalization)
  Sender: FDA-Public Use
  Company Number: THQ2004A00321

PATIENT
  Age: 72 Year

DRUGS (1)
  1. LUCRIN (LEUPROLIDE ACETATE) [Suspect]

REACTIONS (6)
  - ANGINA UNSTABLE [None]
  - AORTIC VALVE DISEASE [None]
  - CEREBROVASCULAR ACCIDENT [None]
  - DILATATION ATRIAL [None]
  - MITRAL VALVE INCOMPETENCE [None]
  - PULMONARY HYPERTENSION [None]
